FAERS Safety Report 9070771 (Version 1)
Quarter: 2013Q1

REPORT INFORMATION
  Report Type: Spontaneous
  Country: US (occurrence: US)
  Receive Date: 20130206
  Receipt Date: 20130206
  Transmission Date: 20140127
  Serious: No
  Sender: FDA-Public Use
  Company Number: US-ALLERGAN-1205456US

PATIENT
  Age: 64 Year
  Sex: Male

DRUGS (12)
  1. RESTASIS? [Suspect]
     Indication: DRY EYE
     Dosage: 2 GTT, BID
     Route: 047
     Dates: start: 201202
  2. RESTASIS? [Suspect]
     Indication: EXCESSIVE EYE BLINKING
  3. FLUOXETINE [Concomitant]
     Indication: DEPRESSION
     Dosage: 20 MG, UNK
     Route: 048
  4. GABAPENTIN [Concomitant]
     Indication: PRODUCT USED FOR UNKNOWN INDICATION
     Dosage: 600 MG, BID
     Route: 048
  5. VERAPAMIL [Concomitant]
     Indication: HYPERTENSION
     Dosage: 180 MG, BID
     Route: 048
  6. TRANDOLAPRIL [Concomitant]
     Indication: HYPERTENSION
     Dosage: 4 MG, UNK
     Route: 048
  7. HYDROCHLOORTHIAZIDE [Concomitant]
     Indication: POLYURIA
     Dosage: 25 MG, UNK
     Route: 048
  8. CLONAZEPAM [Concomitant]
     Indication: PRODUCT USED FOR UNKNOWN INDICATION
     Dosage: 2 MG, BID
     Route: 048
  9. ARTIFICIAL TEARS                   /00445101/ [Concomitant]
     Indication: DRY EYE
     Dosage: 2 GTT, UNK
     Route: 047
     Dates: start: 201202
  10. ARTIFICIAL TEARS                   /00445101/ [Concomitant]
     Indication: EXCESSIVE EYE BLINKING
  11. STEROID EYE DROP [Concomitant]
     Indication: DRY EYE
     Dosage: UNK
     Dates: start: 201202
  12. STEROID EYE DROP [Concomitant]
     Indication: EXCESSIVE EYE BLINKING

REACTIONS (2)
  - Blood pressure systolic increased [Not Recovered/Not Resolved]
  - Headache [Not Recovered/Not Resolved]
